FAERS Safety Report 7828540-3 (Version None)
Quarter: 2011Q4

REPORT INFORMATION
  Report Type: 
  Country: None (occurrence: None)
  Receive Date: 20111020
  Receipt Date: 20111006
  Transmission Date: 20120403
  Serious: Yes (Hospitalization)
  Sender: FDA-Public Use
  Company Number: US-NOVEN-11US003378

PATIENT
  Age: 19 Month
  Sex: Female

DRUGS (1)
  1. FENTANYL [Suspect]
     Indication: PRODUCT USED FOR UNKNOWN INDICATION
     Dosage: UNK

REACTIONS (10)
  - ATAXIA [None]
  - OVERDOSE [None]
  - COMA [None]
  - DRUG ADMINISTRATION ERROR [None]
  - BLOOD PH DECREASED [None]
  - LEUKOENCEPHALOPATHY [None]
  - ACCIDENTAL DRUG INTAKE BY CHILD [None]
  - RESPIRATORY DEPRESSION [None]
  - HYPERGLYCAEMIA [None]
  - CONVULSION [None]
